FAERS Safety Report 24324482 (Version 2)
Quarter: 2024Q3

REPORT INFORMATION
  Report Type: Spontaneous
  Country: US (occurrence: US)
  Receive Date: 20240916
  Receipt Date: 20240916
  Transmission Date: 20241016
  Serious: Yes (Other)
  Sender: IPSEN
  Company Number: US-IPSEN Group, Research and Development-2024-18061

PATIENT
  Age: 64 Year
  Sex: Male

DRUGS (1)
  1. SOMATULINE DEPOT [Suspect]
     Active Substance: LANREOTIDE ACETATE
     Indication: Product used for unknown indication
     Dosage: SOMATULINE DEPOT PFS 60MG
     Route: 058

REACTIONS (4)
  - Surgery [Unknown]
  - Diarrhoea [Unknown]
  - Heart rate abnormal [Unknown]
  - Blood pressure abnormal [Unknown]
